FAERS Safety Report 7471902-7 (Version None)
Quarter: 2011Q2

REPORT INFORMATION
  Report Type: 
  Country: None (occurrence: None)
  Receive Date: 20110511
  Receipt Date: 20100630
  Transmission Date: 20111010
  Serious: No
  Sender: FDA-Public Use
  Company Number: A0869083A

PATIENT
  Sex: Female

DRUGS (2)
  1. TYKERB [Suspect]
     Dosage: 1250MGD PER DAY
     Route: 048
     Dates: start: 20100513
  2. FEMARA [Suspect]
     Route: 065

REACTIONS (3)
  - UTERINE PROLAPSE [None]
  - BLADDER DISORDER [None]
  - DISCOMFORT [None]
